FAERS Safety Report 9425959 (Version 1)
Quarter: 2013Q3

REPORT INFORMATION
  Report Type: Report from Study
  Country: US (occurrence: US)
  Receive Date: 20130729
  Receipt Date: 20130729
  Transmission Date: 20140515
  Serious: Yes (Death)
  Sender: FDA-Public Use
  Company Number: US-ROCHE-1254587

PATIENT
  Age: 54 Year
  Sex: Female

DRUGS (7)
  1. AVASTIN [Suspect]
     Indication: LUNG NEOPLASM MALIGNANT
     Route: 065
     Dates: start: 20130421
  2. AVASTIN [Suspect]
     Indication: BRAIN NEOPLASM MALIGNANT
  3. CARBOPLATIN [Concomitant]
     Route: 065
  4. ALIMTA [Concomitant]
     Route: 065
  5. ALOXI [Concomitant]
     Route: 065
  6. DECADRON [Concomitant]
     Route: 065
  7. ZEMIDE [Concomitant]
     Route: 065

REACTIONS (1)
  - Death [Fatal]
